FAERS Safety Report 7397815-7 (Version None)
Quarter: 2011Q2

REPORT INFORMATION
  Report Type: 
  Country: None (occurrence: None)
  Receive Date: 20110406
  Receipt Date: 20110331
  Transmission Date: 20111010
  Serious: Yes (Other)
  Sender: FDA-Public Use
  Company Number: US-PFIZER INC-2011072424

PATIENT
  Sex: Female
  Weight: 70.295 kg

DRUGS (3)
  1. TYGACIL [Suspect]
     Indication: ROCKY MOUNTAIN SPOTTED FEVER
  2. RIFAMPIN [Concomitant]
     Indication: DYSPLASIA
     Dosage: UNK
  3. TYGACIL [Suspect]
     Indication: LYME DISEASE
     Dosage: 100 MG, DAILY
     Route: 042
     Dates: start: 20110301, end: 20110301

REACTIONS (2)
  - VOMITING [None]
  - MALAISE [None]
